FAERS Safety Report 19083072 (Version 3)
Quarter: 2021Q2

REPORT INFORMATION
  Report Type: Other
  Country: US (occurrence: US)
  Receive Date: 20210401
  Receipt Date: 20210521
  Transmission Date: 20210717
  Serious: Yes (Other)
  Sender: FDA-Public Use
  Company Number: US-ROCHE-2802382

PATIENT
  Sex: Male

DRUGS (3)
  1. ALECENSA [Suspect]
     Active Substance: ALECTINIB HYDROCHLORIDE
     Indication: NEOPLASM MALIGNANT
  2. RYBELSUS [Concomitant]
     Active Substance: SEMAGLUTIDE
  3. ALECENSA [Suspect]
     Active Substance: ALECTINIB HYDROCHLORIDE
     Indication: LUNG NEOPLASM MALIGNANT
     Dosage: TAKE 4 CAPSULE(S) BY MOUTH TWICE A DAY
     Route: 048

REACTIONS (1)
  - Type 2 diabetes mellitus [Unknown]
